FAERS Safety Report 20783197 (Version 1)
Quarter: 2022Q2

REPORT INFORMATION
  Report Type: Spontaneous
  Country: US (occurrence: None)
  Receive Date: 20220504
  Receipt Date: 20220504
  Transmission Date: 20220721
  Serious: No
  Sender: FDA-Public Use
  Company Number: US-ALVOGEN-2021-ALVOGEN-117288-01

PATIENT
  Age: 45 Year
  Sex: Female
  Weight: 51.00 kg

DRUGS (1)
  1. NITROFURANTOIN MONOHYDRATE MACROCRYSTALS [Suspect]
     Active Substance: NITROFURANTOIN\NITROFURANTOIN MONOHYDRATE
     Indication: Urinary tract infection

REACTIONS (5)
  - Bone pain [Unknown]
  - Headache [Unknown]
  - Pyrexia [Unknown]
  - Dyspnoea [Unknown]
  - Urticaria [Unknown]
